FAERS Safety Report 10560914 (Version 2)
Quarter: 2014Q4

REPORT INFORMATION
  Report Type: Spontaneous
  Country: CO (occurrence: CO)
  Receive Date: 20141103
  Receipt Date: 20141103
  Transmission Date: 20150529
  Serious: Yes (Hospitalization)
  Sender: FDA-Public Use
  Company Number: CO-GLAXOSMITHKLINE-A1090469A

PATIENT

DRUGS (1)
  1. DOLEX 0+ [Suspect]
     Active Substance: ACETAMINOPHEN
     Route: 048

REACTIONS (4)
  - Accidental overdose [None]
  - Overdose [Recovered/Resolved]
  - Vomiting [Recovered/Resolved]
  - Transaminases increased [None]
